FAERS Safety Report 5429918-8 (Version None)
Quarter: 2007Q3

REPORT INFORMATION
  Report Type: 
  Country: None (occurrence: None)
  Receive Date: 20070829
  Receipt Date: 20070820
  Transmission Date: 20080115
  Serious: Yes (Other)
  Sender: FDA-Public Use
  Company Number: US-PFIZER INC-2007054428

PATIENT
  Sex: Female
  Weight: 83.9 kg

DRUGS (8)
  1. SUTENT [Suspect]
     Indication: METASTATIC RENAL CELL CARCINOMA
     Route: 048
     Dates: start: 20070618, end: 20070712
  2. PREDNISONE [Concomitant]
     Dates: start: 19930101
  3. PROTONIX [Concomitant]
     Dates: start: 20060701
  4. FOLIC ACID [Concomitant]
     Dates: start: 20060601
  5. WARFARIN SODIUM [Concomitant]
  6. SENNA [Concomitant]
  7. DOCUSATE [Concomitant]
  8. AMIODARONE [Concomitant]
     Dates: start: 20070803

REACTIONS (5)
  - ABDOMINAL PAIN [None]
  - DYSGEUSIA [None]
  - GLOSSITIS [None]
  - INTESTINAL OBSTRUCTION [None]
  - STOMATITIS [None]
